FAERS Safety Report 11231050 (Version 1)
Quarter: 2015Q3

REPORT INFORMATION
  Report Type: Spontaneous
  Country: JP (occurrence: JP)
  Receive Date: 20150701
  Receipt Date: 20150701
  Transmission Date: 20151125
  Serious: Yes (Other)
  Sender: FDA-Public Use
  Company Number: JP-ACTAVIS-2015-12505

PATIENT
  Age: 55 Year
  Sex: Male

DRUGS (2)
  1. CISPLATIN (UNKNOWN) [Suspect]
     Active Substance: CISPLATIN
     Indication: LUNG ADENOCARCINOMA STAGE III
     Dosage: 60 MG/M2, CYCLICAL,  ON DAY 1; 2 CYCLES
     Route: 065
  2. IRINOTECAN (UNKNOWN) [Suspect]
     Active Substance: IRINOTECAN
     Indication: LUNG ADENOCARCINOMA STAGE III
     Dosage: 50 MG/M2, DAY 1 AND 8, CYCLICAL,2 CYCLES
     Route: 065

REACTIONS (1)
  - Granuloma [Unknown]
